FAERS Safety Report 25130769 (Version 5)
Quarter: 2025Q2

REPORT INFORMATION
  Report Type: Spontaneous
  Country: US (occurrence: US)
  Receive Date: 20250327
  Receipt Date: 20250422
  Transmission Date: 20250717
  Serious: Yes (Other)
  Sender: GLAXOSMITHKLINE
  Company Number: US-GSK-US2025035391

PATIENT

DRUGS (1)
  1. NUCALA [Suspect]
     Active Substance: MEPOLIZUMAB
     Indication: Product used for unknown indication

REACTIONS (8)
  - Eosinophilic granulomatosis with polyangiitis [Unknown]
  - Autoimmune disorder [Unknown]
  - Oral lichen planus [Unknown]
  - Hypersensitivity [Unknown]
  - Ocular hyperaemia [Recovering/Resolving]
  - Rhinorrhoea [Unknown]
  - Eyelid ptosis [Unknown]
  - Product dose omission issue [Unknown]

NARRATIVE: CASE EVENT DATE: 20250101
